FAERS Safety Report 7070462-2 (Version None)
Quarter: 2010Q4

REPORT INFORMATION
  Report Type: 
  Country: None (occurrence: None)
  Receive Date: 20101028
  Receipt Date: 20101028
  Transmission Date: 20110411
  Serious: Yes (Life-Threatening, Hospitalization)
  Sender: FDA-Public Use
  Company Number: None

PATIENT
  Age: 51 Year
  Sex: Female
  Weight: 122.0176 kg

DRUGS (1)
  1. ACTOS [Suspect]
     Dosage: 15 MG 1 TAB DAILY
     Dates: start: 20100202, end: 20100914

REACTIONS (6)
  - ANAEMIA [None]
  - BLOOD GLUCOSE DECREASED [None]
  - CARDIAC FAILURE CONGESTIVE [None]
  - DYSPNOEA [None]
  - FATIGUE [None]
  - OEDEMA PERIPHERAL [None]
